FAERS Safety Report 4461171-4 (Version None)
Quarter: 2004Q3

REPORT INFORMATION
  Report Type: 
  Country: None (occurrence: None)
  Receive Date: 20040928
  Receipt Date: 20040917
  Transmission Date: 20050211
  Serious: Yes (Other)
  Sender: FDA-Public Use
  Company Number: FR-JNJFOC-20040706065

PATIENT
  Sex: Female

DRUGS (8)
  1. RISPERDAL [Suspect]
     Route: 049
  2. RISPERDAL [Suspect]
     Route: 049
  3. RISPERDAL [Suspect]
     Route: 049
  4. RISPERDAL CONSTA [Suspect]
     Route: 030
  5. SKENAN LP [Concomitant]
     Dates: start: 20031124, end: 20040109
  6. ACETAMINOPHEN [Concomitant]
     Dates: start: 20031117, end: 20040309
  7. TOPALGIC [Concomitant]
     Dates: start: 20031117, end: 20040309
  8. FLAXIPARINE [Concomitant]
     Dates: start: 20031117, end: 20031223

REACTIONS (5)
  - ANTINUCLEAR ANTIBODY POSITIVE [None]
  - CARDIOLIPIN ANTIBODY [None]
  - LEUKOPENIA [None]
  - NEUTROPENIA [None]
  - THROMBOCYTOPENIA [None]
